FAERS Safety Report 9189789 (Version 3)
Quarter: 2013Q3

REPORT INFORMATION
  Report Type: Report from Study
  Country: US (occurrence: US)
  Receive Date: 20130326
  Receipt Date: 20130725
  Transmission Date: 20140515
  Serious: No
  Sender: FDA-Public Use
  Company Number: US-VERTEX PHARMACEUTICALS INC.-2013-004045

PATIENT
  Age: 63 Year
  Sex: Female

DRUGS (4)
  1. VX-950 (TELAPREVIR) [Suspect]
     Indication: HEPATITIS C
     Dosage: UNK
     Route: 048
     Dates: start: 20130107, end: 20130401
  2. RIBAVIRIN [Suspect]
     Indication: HEPATITIS C
     Dosage: 200 UNK, UNK
     Route: 048
     Dates: start: 20130107, end: 20130624
  3. PEGASYS [Suspect]
     Indication: HEPATITIS C
     Dosage: UNK
     Route: 058
     Dates: start: 20130107, end: 20130624
  4. METFORMIN [Concomitant]

REACTIONS (3)
  - Stomatitis [Unknown]
  - Fatigue [Not Recovered/Not Resolved]
  - Anaemia [Not Recovered/Not Resolved]
